FAERS Safety Report 5274899-3 (Version None)
Quarter: 2007Q1

REPORT INFORMATION
  Report Type: 
  Country: None (occurrence: None)
  Receive Date: 20061208
  Receipt Date: 20060720
  Transmission Date: 20070707
  Serious: Yes (Hospitalization)
  Sender: FDA-Public Use
  Company Number: 2006UW14827

PATIENT
  Age: 61 Year
  Sex: Male

DRUGS (3)
  1. CRESTOR [Suspect]
     Indication: BLOOD CHOLESTEROL INCREASED
     Dates: end: 20060701
  2. DIOVAN [Concomitant]
  3. TOPROL-XL [Concomitant]

REACTIONS (5)
  - COUGH [None]
  - HEPATIC ENZYME INCREASED [None]
  - MALAISE [None]
  - MYALGIA [None]
  - RENAL FAILURE ACUTE [None]
